FAERS Safety Report 5536648-0 (Version None)
Quarter: 2007Q4

REPORT INFORMATION
  Report Type: 
  Country: None (occurrence: None)
  Receive Date: 20071206
  Receipt Date: 20070725
  Transmission Date: 20080405
  Serious: Yes (Other)
  Sender: FDA-Public Use
  Company Number: US-AMGEN-US227759

PATIENT
  Sex: Male

DRUGS (8)
  1. ENBREL [Suspect]
     Indication: RHEUMATOID ARTHRITIS
     Route: 058
     Dates: start: 20060306, end: 20070618
  2. LIPITOR [Concomitant]
     Dates: start: 20010101
  3. HYZAAR [Concomitant]
     Dates: start: 20050115, end: 20060215
  4. COZAAR [Concomitant]
     Dates: start: 20060216, end: 20070103
  5. METOPROLOL [Concomitant]
     Dates: start: 20070103, end: 20070403
  6. CLONIDINE [Concomitant]
     Dates: start: 20070403
  7. FOSAMAX [Concomitant]
     Dates: start: 20050223, end: 20070201
  8. METFORMIN HCL [Concomitant]
     Dates: start: 20070103

REACTIONS (1)
  - ANGIOEDEMA [None]
